FAERS Safety Report 11403222 (Version 1)
Quarter: 2015Q3

REPORT INFORMATION
  Report Type: Spontaneous
  Country: BR (occurrence: BR)
  Receive Date: 20150821
  Receipt Date: 20150821
  Transmission Date: 20151125
  Serious: Yes (Death, Hospitalization)
  Sender: FDA-Public Use
  Company Number: BR-BAYER-2015-398957

PATIENT
  Sex: Female
  Weight: 46 kg

DRUGS (4)
  1. MORPHINE [Concomitant]
     Active Substance: MORPHINE
     Indication: ARTHRALGIA
     Dosage: 1 DF, 6ID
     Route: 048
     Dates: start: 201505, end: 201506
  2. OMEPRAZOL [Concomitant]
     Active Substance: OMEPRAZOLE
     Dosage: 1 DF, UNK
     Route: 048
     Dates: start: 201505
  3. NEXAVAR [Suspect]
     Active Substance: SORAFENIB
     Indication: HEPATIC CANCER
     Dosage: 400 MG, BID
     Route: 048
     Dates: start: 20150627, end: 20150726
  4. MORPHINE [Concomitant]
     Active Substance: MORPHINE
     Indication: ARTHRALGIA
     Dosage: 2 DF, 6ID
     Route: 048
     Dates: start: 201506

REACTIONS (6)
  - Metastases to lung [Fatal]
  - Sepsis [Fatal]
  - Pyrexia [None]
  - Dyspnoea [None]
  - Pneumonia [Fatal]
  - Hiccups [None]

NARRATIVE: CASE EVENT DATE: 20150712
